FAERS Safety Report 6453746-8 (Version None)
Quarter: 2009Q4

REPORT INFORMATION
  Report Type: 
  Country: None (occurrence: None)
  Receive Date: 20091124
  Receipt Date: 20091019
  Transmission Date: 20100525
  Serious: No
  Sender: FDA-Public Use
  Company Number: US-BRISTOL-MYERS SQUIBB COMPANY-14811145

PATIENT
  Age: 83 Year
  Sex: Male

DRUGS (4)
  1. ONGLYZA [Suspect]
     Indication: DIABETES MELLITUS
     Route: 048
     Dates: start: 20090903
  2. METFORMIN HCL [Suspect]
     Dosage: 1 DOSAGE FORM = 1000 (UNIT NOT SPECIFIED).
  3. AVALIDE [Suspect]
     Dosage: 300/25 REDUCED TO 150/12.5
  4. GLUCOVANCE [Concomitant]
     Dates: end: 20090903

REACTIONS (2)
  - BLOOD GLUCOSE INCREASED [None]
  - BLOOD PRESSURE DECREASED [None]
